FAERS Safety Report 6067978-4 (Version None)
Quarter: 2009Q1

REPORT INFORMATION
  Report Type: 
  Country: None (occurrence: None)
  Receive Date: 20090206
  Receipt Date: 20090130
  Transmission Date: 20090719
  Serious: Yes (Other)
  Sender: FDA-Public Use
  Company Number: CH-JNJFOC-20090200075

PATIENT
  Age: 55 Year
  Sex: Female

DRUGS (2)
  1. RISPERDAL CONSTA [Suspect]
     Indication: SCHIZOAFFECTIVE DISORDER
     Route: 030
  2. DALMADORM [Concomitant]
     Route: 048

REACTIONS (2)
  - HEPATOCELLULAR INJURY [None]
  - WEIGHT INCREASED [None]
